FAERS Safety Report 4952299-0 (Version None)
Quarter: 2006Q1

REPORT INFORMATION
  Report Type: 
  Country: None (occurrence: None)
  Receive Date: 20060320
  Receipt Date: 20060307
  Transmission Date: 20060701
  Serious: Yes (Other)
  Sender: FDA-Public Use
  Company Number: 2006010921

PATIENT
  Age: 2 Year
  Sex: Female
  Weight: 11.3399 kg

DRUGS (2)
  1. CHILDREN'S PEDICARE MULTI-SYMPTOM COLD (PSEUDOEPHEDRINE, DEXTROMETHORP [Suspect]
     Indication: NASOPHARYNGITIS
     Dosage: 1/2 TEASPOON ONCE, ORAL
     Route: 048
     Dates: start: 20060115, end: 20060115
  2. IBUPROFEN [Concomitant]

REACTIONS (6)
  - ABNORMAL BEHAVIOUR [None]
  - CRYING [None]
  - EMOTIONAL DISTRESS [None]
  - HALLUCINATION [None]
  - MUSCLE RIGIDITY [None]
  - SCREAMING [None]
